FAERS Safety Report 16338651 (Version 1)
Quarter: 2019Q2

REPORT INFORMATION
  Report Type: Report from Study
  Country: ES (occurrence: ES)
  Receive Date: 20190521
  Receipt Date: 20190521
  Transmission Date: 20190711
  Serious: Yes (Death, Hospitalization)
  Sender: FDA-Public Use
  Company Number: ES-MYLANLABS-2019M1046663

PATIENT
  Age: 75 Year
  Sex: Female

DRUGS (6)
  1. OMEPRAZOLE. [Interacting]
     Active Substance: OMEPRAZOLE
     Indication: PRODUCT USED FOR UNKNOWN INDICATION
     Dosage: 20 MILLIGRAM, QD (|| DOSIS UNIDAD FRECUENCIA: 20 MG-MILIGRAMOS || DOSIS)
     Route: 048
     Dates: start: 2013, end: 20150918
  2. SINTROM [Interacting]
     Active Substance: ACENOCOUMAROL
     Indication: VALVULOPLASTY CARDIAC
     Dosage: UNK
     Route: 048
     Dates: start: 2013, end: 20150918
  3. SIMVASTATIN. [Interacting]
     Active Substance: SIMVASTATIN
     Indication: HYPERCHOLESTEROLAEMIA
     Dosage: 20 MILLIGRAM, QD (|| DOSIS UNIDAD FRECUENCIA: 60 MG-MILIGRAMOS || DOSIS)
     Route: 048
     Dates: start: 2013, end: 20150918
  4. ALLOPURINOL. [Interacting]
     Active Substance: ALLOPURINOL
     Indication: PRODUCT USED FOR UNKNOWN INDICATION
     Dosage: 100 MILLIGRAM, QD (|| DOSIS UNIDAD FRECUENCIA: 100 MG-MILIGRAMOS ||)
     Route: 048
     Dates: start: 2015, end: 20150918
  5. METAMIZOLE [Concomitant]
     Active Substance: METAMIZOLE
     Dosage: 575 MILLIGRAM, Q8H (|| DOSIS UNIDAD FRECUENCIA: 1725 MG-MILIGRAMOS ||)
     Route: 048
     Dates: start: 2015, end: 20150918
  6. TRAMADOL. [Suspect]
     Active Substance: TRAMADOL
     Indication: PRODUCT USED FOR UNKNOWN INDICATION
     Dosage: 50 MILLIGRAM, Q8H (|| DOSIS UNIDAD FRECUENCIA: 150 MG-MILIGRAMOS ||)
     Route: 048
     Dates: start: 2015, end: 20150918

REACTIONS (2)
  - Cerebral haemorrhage [Fatal]
  - Drug interaction [Unknown]

NARRATIVE: CASE EVENT DATE: 20150918
